FAERS Safety Report 13776024 (Version 4)
Quarter: 2018Q1

REPORT INFORMATION
  Report Type: Spontaneous
  Country: US (occurrence: US)
  Receive Date: 20170720
  Receipt Date: 20180223
  Transmission Date: 20180508
  Serious: Yes (Other)
  Sender: FDA-Public Use
  Company Number: US-BAYER-2017-137705

PATIENT
  Age: 21 Year
  Sex: Female
  Weight: 109.48 kg

DRUGS (5)
  1. LOPERAMIDE [Concomitant]
     Active Substance: LOPERAMIDE
     Dosage: TAKE 2 CAPSULE BY ORAL ROUTE AFTER 1ST LOOSE STOOL,FOLLOWED BY 1 CAPSULE AFTER EACH SUBSEQUENT LOOSE
     Route: 048
  2. MIRENA [Suspect]
     Active Substance: LEVONORGESTREL
     Indication: CONTRACEPTION
     Dosage: 20 MCG/24HR, CONT
     Route: 015
     Dates: start: 20150708, end: 20170713
  3. MIRENA [Suspect]
     Active Substance: LEVONORGESTREL
     Indication: CONTRACEPTION
  4. DICYCLOMINE HCL [Concomitant]
     Active Substance: DICYCLOMINE HYDROCHLORIDE
     Dosage: TAKE 1 TABLET BY ORAL ROUTE 4 TIMES EVERY DAY.
     Route: 048
  5. INVEGA [Concomitant]
     Active Substance: PALIPERIDONE
     Dosage: INJECT 0.87 MILLILITER BY INTRAMUSCULAR ROUTE EVERY 3 MONTHS
     Route: 030

REACTIONS (3)
  - Abdominal pain lower [Recovered/Resolved]
  - Device breakage [Recovered/Resolved]
  - Complication of device removal [Recovered/Resolved]

NARRATIVE: CASE EVENT DATE: 20170713
